FAERS Safety Report 5096665-4 (Version None)
Quarter: 2006Q3

REPORT INFORMATION
  Report Type: 
  Country: None (occurrence: None)
  Receive Date: 20060905
  Receipt Date: 20060823
  Transmission Date: 20061208
  Serious: Yes (Hospitalization)
  Sender: FDA-Public Use
  Company Number: US-MERCK-0608USA05444

PATIENT
  Age: 58 Year
  Sex: Female

DRUGS (3)
  1. COZAAR [Suspect]
     Indication: HYPERTENSION
     Route: 048
     Dates: start: 20060808, end: 20060810
  2. PROCARDIA [Concomitant]
     Route: 065
  3. [THERAPY UNSPECIFIED] [Concomitant]
     Route: 065

REACTIONS (5)
  - BLISTER [None]
  - CARDIOPULMONARY FAILURE [None]
  - GENERALISED OEDEMA [None]
  - NERVOUS SYSTEM DISORDER [None]
  - ORGAN FAILURE [None]
